FAERS Safety Report 4744035-8 (Version None)
Quarter: 2005Q3

REPORT INFORMATION
  Report Type: 
  Country: None (occurrence: None)
  Receive Date: 20050809
  Receipt Date: 20050728
  Transmission Date: 20060218
  Serious: Yes (Life-Threatening, Hospitalization, Other)
  Sender: FDA-Public Use
  Company Number: USA-2005-0020868

PATIENT
  Sex: Male
  Weight: 40.8 kg

DRUGS (5)
  1. OXYCONTIN [Suspect]
     Dosage: 80 MG, SEE TEXT
     Dates: start: 20020101, end: 20021001
  2. PERCODAN(OXYCODONE TEREPHTHALATE, PHENACETIN, HOMATROPINE TEREPHTHALAT [Suspect]
  3. PERCOCET [Suspect]
  4. XANAX [Suspect]
     Dosage: 20 MG, DAILY
  5. SOMA [Suspect]

REACTIONS (13)
  - AMNESIA [None]
  - ANOREXIA [None]
  - ASTHENIA [None]
  - COMA [None]
  - DEPRESSION [None]
  - DRUG DEPENDENCE [None]
  - DRUG WITHDRAWAL SYNDROME [None]
  - EUPHORIC MOOD [None]
  - FAECAL INCONTINENCE [None]
  - FEELING COLD [None]
  - ORAL INTAKE REDUCED [None]
  - POLYSUBSTANCE ABUSE [None]
  - WEIGHT DECREASED [None]
